FAERS Safety Report 18239485 (Version 1)
Quarter: 2020Q3

REPORT INFORMATION
  Report Type: Spontaneous
  Country: DK (occurrence: DK)
  Receive Date: 20200908
  Receipt Date: 20200908
  Transmission Date: 20201103
  Serious: Yes (Hospitalization, Disabling)
  Sender: FDA-Public Use
  Company Number: DK-AUROBINDO-AUR-APL-2020-046466

PATIENT
  Age: 56 Year
  Sex: Male
  Weight: 83 kg

DRUGS (1)
  1. LOSARTAN POTASSIUM / HYDROCHLOROTHIAZIDE FILM?COATED [Suspect]
     Active Substance: HYDROCHLOROTHIAZIDE\LOSARTAN POTASSIUM
     Indication: HYPERTENSION
     Dosage: 1 DOSAGE FORM, ONCE A DAY (STRENGTH: 50 + 12,5MG)
     Route: 048
     Dates: start: 20080101

REACTIONS (2)
  - Panic attack [Unknown]
  - Anxiety [Recovered/Resolved]

NARRATIVE: CASE EVENT DATE: 20080101
